FAERS Safety Report 17446847 (Version 3)
Quarter: 2020Q2

REPORT INFORMATION
  Report Type: Spontaneous
  Country: US (occurrence: US)
  Receive Date: 20200221
  Receipt Date: 20200625
  Transmission Date: 20200713
  Serious: Yes (Disabling, Other)
  Sender: FDA-Public Use
  Company Number: US-SA-2020SA040269

PATIENT

DRUGS (5)
  1. CAMPATH [Suspect]
     Active Substance: ALEMTUZUMAB
     Dosage: UNK
     Route: 065
     Dates: start: 2011, end: 2015
  2. COPAXONE [Concomitant]
     Active Substance: GLATIRAMER ACETATE
     Indication: MULTIPLE SCLEROSIS
     Dosage: UNK
     Route: 065
  3. AUBAGIO [Concomitant]
     Active Substance: TERIFLUNOMIDE
     Indication: MULTIPLE SCLEROSIS
     Dosage: 14 MG, QD
     Route: 048
     Dates: start: 20160628, end: 20181101
  4. PROPRANOLOL [Concomitant]
     Active Substance: PROPRANOLOL HYDROCHLORIDE
     Indication: TREMOR
     Dosage: UNK
     Route: 065
  5. CAMPATH [Suspect]
     Active Substance: ALEMTUZUMAB
     Dosage: UNK, TIW
     Route: 065
     Dates: start: 20180709

REACTIONS (13)
  - Poor venous access [Unknown]
  - Limb discomfort [Not Recovered/Not Resolved]
  - Tremor [Not Recovered/Not Resolved]
  - Condition aggravated [Unknown]
  - Fatigue [Unknown]
  - Weight increased [Unknown]
  - Anxiety [Not Recovered/Not Resolved]
  - Dysgraphia [Not Recovered/Not Resolved]
  - Loss of personal independence in daily activities [Not Recovered/Not Resolved]
  - Memory impairment [Unknown]
  - Multiple sclerosis relapse [Unknown]
  - Gait inability [Unknown]
  - Muscular weakness [Unknown]

NARRATIVE: CASE EVENT DATE: 20200106
